FAERS Safety Report 8206232-9 (Version None)
Quarter: 2012Q1

REPORT INFORMATION
  Report Type: 
  Country: None (occurrence: None)
  Receive Date: 20120313
  Receipt Date: 20120223
  Transmission Date: 20120608
  Serious: Yes (Other)
  Sender: FDA-Public Use
  Company Number: PHHY2012CA015056

PATIENT
  Sex: Male

DRUGS (5)
  1. GABAPENTIN [Concomitant]
     Dosage: 300 MG, TID
     Dates: start: 20111221
  2. AFINITOR [Suspect]
     Dosage: 10 MG, QOD (FOR A MONTH)
     Route: 048
  3. SANDOSTATIN LAR [Suspect]
     Indication: CARCINOID TUMOUR
     Dosage: 20 MG, EVERY 4 WEEKS
     Route: 030
     Dates: start: 20110714
  4. AFINITOR [Suspect]
     Indication: CARCINOID TUMOUR
     Dosage: 10 MG, EVERY DAY
     Route: 048
     Dates: start: 20111015
  5. PANTOPRAZOLE SODIUM [Concomitant]
     Dosage: 40 MG DAILY
     Dates: start: 20111221

REACTIONS (6)
  - FATIGUE [None]
  - PLATELET COUNT DECREASED [None]
  - WHITE BLOOD CELL COUNT DECREASED [None]
  - HAEMOGLOBIN DECREASED [None]
  - HEPATIC ENZYME INCREASED [None]
  - NEUTROPHIL COUNT DECREASED [None]
